FAERS Safety Report 16095073 (Version 1)
Quarter: 2019Q2

REPORT INFORMATION
  Report Type: Spontaneous
  Country: US (occurrence: US)
  Receive Date: 20190320
  Receipt Date: 20190320
  Transmission Date: 20190711
  Serious: Yes (Hospitalization)
  Sender: FDA-Public Use
  Company Number: None

PATIENT
  Sex: Male

DRUGS (16)
  1. CEFIXIME. [Concomitant]
     Active Substance: CEFIXIME
  2. FAMOTIDINE. [Concomitant]
     Active Substance: FAMOTIDINE
  3. NEULASTA [Suspect]
     Active Substance: PEGFILGRASTIM
     Indication: BONE CANCER
     Dosage: ?          OTHER FREQUENCY:AS DIRECTED;?
     Route: 058
     Dates: start: 20190307
  4. ATIVAN [Concomitant]
     Active Substance: LORAZEPAM
  5. CYPROHEPTAD [Concomitant]
  6. AZITHROMYCIN ANHYDROUS. [Concomitant]
     Active Substance: AZITHROMYCIN ANHYDROUS
  7. DRONABINOL. [Concomitant]
     Active Substance: DRONABINOL
  8. SMZ TMP [Concomitant]
  9. NEUPOGEN [Concomitant]
     Active Substance: FILGRASTIM
  10. LORAZEPAM. [Concomitant]
     Active Substance: LORAZEPAM
  11. METRONIDAZOL [Concomitant]
     Active Substance: METRONIDAZOLE
  12. BANOPHEN [Concomitant]
     Active Substance: DIPHENHYDRAMINE HYDROCHLORIDE
  13. NEULASTA [Suspect]
     Active Substance: PEGFILGRASTIM
     Indication: EXTERNAL EAR NEOPLASM MALIGNANT
     Dosage: ?          OTHER FREQUENCY:AS DIRECTED;?
     Route: 058
     Dates: start: 20190307
  14. DEXAMETHASON [Concomitant]
     Active Substance: DEXAMETHASONE
  15. FENTANYL. [Concomitant]
     Active Substance: FENTANYL
  16. TEMOZOLOMIDE. [Concomitant]
     Active Substance: TEMOZOLOMIDE

REACTIONS (1)
  - Weight decreased [None]
